APPROVED DRUG PRODUCT: POMALIDOMIDE
Active Ingredient: POMALIDOMIDE
Strength: 3MG
Dosage Form/Route: CAPSULE;ORAL
Application: A210275 | Product #003
Applicant: MYLAN PHARMACEUTICALS INC
Approved: Jan 26, 2022 | RLD: No | RS: No | Type: DISCN